FAERS Safety Report 25728430 (Version 2)
Quarter: 2025Q4

REPORT INFORMATION
  Report Type: Spontaneous
  Country: US (occurrence: US)
  Receive Date: 20250826
  Receipt Date: 20251022
  Transmission Date: 20260117
  Serious: No
  Sender: CALLIDITAS THERAPEUTICS AB
  Company Number: US-Calliditas-2025CAL01906

PATIENT
  Age: 34 Year
  Sex: Male

DRUGS (4)
  1. TARPEYO [Suspect]
     Active Substance: BUDESONIDE
     Indication: IgA nephropathy
     Route: 048
     Dates: start: 20250606
  2. FARXIGA [Concomitant]
     Active Substance: DAPAGLIFLOZIN PROPANEDIOL
  3. LOSARTAN [Concomitant]
     Active Substance: LOSARTAN
  4. PLAQUENIL [Concomitant]
     Active Substance: HYDROXYCHLOROQUINE SULFATE

REACTIONS (8)
  - Headache [Recovering/Resolving]
  - Nausea [Not Recovered/Not Resolved]
  - Dyspepsia [Recovering/Resolving]
  - Fatigue [Unknown]
  - Thirst [Unknown]
  - Sleep disorder [Not Recovered/Not Resolved]
  - Middle insomnia [Recovering/Resolving]
  - Blood pressure increased [Recovering/Resolving]

NARRATIVE: CASE EVENT DATE: 20250607
